FAERS Safety Report 7409904 (Version 8)
Quarter: 2016Q1

REPORT INFORMATION
  Report Type: Report from Study
  Country: JP (occurrence: JP)
  Receive Date: 20100604
  Receipt Date: 20160223
  Transmission Date: 20160526
  Serious: Yes (Death, Hospitalization)
  Sender: FDA-Public Use
  Company Number: JP-ROCHE-706941

PATIENT
  Age: 61 Year
  Sex: Male
  Weight: 59.2 kg

DRUGS (6)
  1. THYRADIN-S [Concomitant]
     Active Substance: LEVOTHYROXINE
     Indication: HYPOTHYROIDISM
     Route: 048
  2. BISACODYL. [Concomitant]
     Active Substance: BISACODYL
     Indication: CONSTIPATION
     Route: 054
  3. AXITINIB [Suspect]
     Active Substance: AXITINIB
     Indication: GASTRIC CANCER
     Route: 048
     Dates: start: 20100410, end: 20100507
  4. CISPLATIN. [Suspect]
     Active Substance: CISPLATIN
     Indication: GASTRIC CANCER
     Dosage: DAY 1, EVERY 21 DAYS
     Route: 042
     Dates: start: 20100413, end: 20100413
  5. TAKEPRON [Concomitant]
     Active Substance: LANSOPRAZOLE
     Indication: GASTRIC ULCER
     Route: 048
  6. CAPECITABINE. [Suspect]
     Active Substance: CAPECITABINE
     Indication: GASTRIC CANCER
     Dosage: TAKEN ON DAYS 1-14 EVERY 21 DAYS
     Route: 048
     Dates: start: 20100413, end: 20100426

REACTIONS (2)
  - Malignant neoplasm progression [Fatal]
  - Gastrointestinal perforation [Recovering/Resolving]

NARRATIVE: CASE EVENT DATE: 20100510
